FAERS Safety Report 4705347-7 (Version None)
Quarter: 2005Q2

REPORT INFORMATION
  Report Type: 
  Country: None (occurrence: None)
  Receive Date: 20050630
  Receipt Date: 20050630
  Transmission Date: 20051028
  Serious: Yes (Hospitalization)
  Sender: FDA-Public Use
  Company Number: None

PATIENT
  Age: 72 Year
  Sex: Male
  Weight: 106 kg

DRUGS (2)
  1. ADALIMUMAB [Suspect]
     Indication: RHEUMATOID ARTHRITIS
     Dosage: 40 MG Q WEEK SC
     Route: 058
     Dates: start: 20050211, end: 20050428
  2. LEFLUNOMIDE [Suspect]
     Dosage: 20 MG DAILY PO
     Route: 048
     Dates: start: 20050225, end: 20050424

REACTIONS (2)
  - RASH MACULAR [None]
  - RASH PRURITIC [None]
